FAERS Safety Report 5241651-4 (Version None)
Quarter: 2007Q1

REPORT INFORMATION
  Report Type: 
  Country: None (occurrence: None)
  Receive Date: 20070215
  Receipt Date: 20070215
  Transmission Date: 20070707
  Serious: Yes (Hospitalization)
  Sender: FDA-Public Use
  Company Number: None

PATIENT
  Age: 76 Year
  Sex: Male
  Weight: 89.8122 kg

DRUGS (11)
  1. AGGRENOX [Suspect]
     Indication: CEREBROVASCULAR ACCIDENT
     Dosage: 1 BID 25/200
     Dates: start: 20060609, end: 20061211
  2. ALLOPURINOL SODIUM [Concomitant]
  3. ISMN [Concomitant]
  4. OMEPRAZOLE [Concomitant]
  5. TERAZOSIN HCL [Concomitant]
  6. NOVOLIN 70/30 [Concomitant]
  7. METOPROLOL SUCCINATE [Concomitant]
  8. LOSARTAN POTASSIUM [Concomitant]
  9. FOLIC ACID [Concomitant]
  10. SIMVASTATIN [Concomitant]
  11. LASIX [Concomitant]

REACTIONS (2)
  - BLOOD PRESSURE INCREASED [None]
  - HEADACHE [None]
